FAERS Safety Report 7371587-4 (Version None)
Quarter: 2011Q1

REPORT INFORMATION
  Report Type: 
  Country: None (occurrence: None)
  Receive Date: 20110307
  Receipt Date: 20110303
  Transmission Date: 20110831
  Serious: Yes (Other)
  Sender: FDA-Public Use
  Company Number: 2011027563

PATIENT
  Age: 64 Year
  Sex: Female
  Weight: 32.659 kg

DRUGS (8)
  1. ADVAIR DISKUS 100/50 [Concomitant]
  2. THEO-DUR [Concomitant]
  3. WOMEN'S ONE A DAY (MULTIVITAMINS) [Concomitant]
  4. ZEMAIRA [Suspect]
     Indication: ALPHA-1 ANTI-TRYPSIN DEFICIENCY
     Dosage: (60 MG/KG, 60 MG/KG (1986 GM) 40 ML/2 GM INFUSED OVER 30 MINUTES INTRAVENOUS (NOT OTHERWISE SPECIFIE
     Route: 042
     Dates: start: 20110204
  5. ALBUTEROL [Concomitant]
  6. IPRATROPIUM BR (IPRATROPIUM BROMIDE) [Concomitant]
  7. HYDROCHLOROTHIAZIDE [Concomitant]
  8. BYSTOLIC [Concomitant]

REACTIONS (2)
  - HYPERTENSION [None]
  - FLUID OVERLOAD [None]
